FAERS Safety Report 4316305-9 (Version None)
Quarter: 2004Q1

REPORT INFORMATION
  Report Type: 
  Country: None (occurrence: None)
  Receive Date: 20040310
  Receipt Date: 20031110
  Transmission Date: 20041129
  Serious: Yes (Death)
  Sender: FDA-Public Use
  Company Number: HQWYE982011NOV03

PATIENT
  Age: 70 Year
  Sex: Female

DRUGS (2)
  1. PROTONIX [Suspect]
     Dosage: 40 MG 1 X PER 1 DAY ORAL
     Route: 048
  2. PAMELOR [Suspect]
     Dosage: 10 MG 1 X PER 1 DAY ORAL
     Route: 048

REACTIONS (8)
  - COAGULOPATHY [None]
  - CONFUSIONAL STATE [None]
  - DEHYDRATION [None]
  - HEADACHE [None]
  - LIVER FUNCTION TEST ABNORMAL [None]
  - MULTI-ORGAN FAILURE [None]
  - RENAL FAILURE [None]
  - RHABDOMYOLYSIS [None]
